FAERS Safety Report 9311029 (Version 1)
Quarter: 2013Q2

REPORT INFORMATION
  Report Type: Report from Study
  Country: CO (occurrence: CO)
  Receive Date: 20130528
  Receipt Date: 20130528
  Transmission Date: 20140414
  Serious: Yes (Death)
  Sender: FDA-Public Use
  Company Number: CO-SANOFI-AVENTIS-2013SA051221

PATIENT
  Age: 68 Year
  Sex: Female

DRUGS (1)
  1. INSULIN GLARGINE [Suspect]
     Indication: TYPE 2 DIABETES MELLITUS
     Route: 058
     Dates: start: 201211, end: 20130505

REACTIONS (1)
  - Hepatic cancer [Fatal]
